FAERS Safety Report 9165878 (Version 1)
Quarter: 2013Q1

REPORT INFORMATION
  Report Type: Spontaneous
  Country: ES (occurrence: ES)
  Receive Date: 20130315
  Receipt Date: 20130315
  Transmission Date: 20140127
  Serious: Yes (Other)
  Sender: FDA-Public Use
  Company Number: PHHY2013ES023966

PATIENT
  Age: 45 Year
  Sex: Female

DRUGS (3)
  1. METHOTREXATE [Suspect]
     Indication: ARTHRALGIA
     Dosage: 10 MG, QW
     Route: 058
  2. INFLIXIMAB [Concomitant]
     Indication: PSORIASIS
  3. INFLIXIMAB [Concomitant]
     Indication: PSORIATIC ARTHROPATHY

REACTIONS (1)
  - Pleurisy [Unknown]
